FAERS Safety Report 14186192 (Version 2)
Quarter: 2017Q4

REPORT INFORMATION
  Report Type: Report from Study
  Country: US (occurrence: US)
  Receive Date: 20171114
  Receipt Date: 20171201
  Transmission Date: 20180321
  Serious: Yes (Hospitalization)
  Sender: FDA-Public Use
  Company Number: US-ROCHE-2021398

PATIENT
  Age: 69 Year
  Sex: Male
  Weight: 79.5 kg

DRUGS (2)
  1. BEVACIZUMAB. [Suspect]
     Active Substance: BEVACIZUMAB
     Indication: METASTATIC RENAL CELL CARCINOMA
     Route: 042
     Dates: start: 20171020
  2. ATEZOLIZUMAB. [Suspect]
     Active Substance: ATEZOLIZUMAB
     Indication: METASTATIC RENAL CELL CARCINOMA
     Route: 042
     Dates: start: 20171020

REACTIONS (14)
  - Brain natriuretic peptide increased [Unknown]
  - Acute kidney injury [Unknown]
  - Fatigue [Unknown]
  - Muscular weakness [Unknown]
  - Pulmonary oedema [Unknown]
  - Blood fibrinogen increased [Unknown]
  - Acute kidney injury [Unknown]
  - Pyrexia [Unknown]
  - Dyspnoea [Unknown]
  - Abdominal pain lower [Unknown]
  - Haemoglobin decreased [Unknown]
  - Thrombocytopenia [Unknown]
  - Atelectasis [Unknown]
  - Pallor [Unknown]

NARRATIVE: CASE EVENT DATE: 20171102
